FAERS Safety Report 24542214 (Version 1)
Quarter: 2024Q4

REPORT INFORMATION
  Report Type: Spontaneous
  Country: GB (occurrence: GB)
  Receive Date: 20241023
  Receipt Date: 20241023
  Transmission Date: 20250114
  Serious: Yes (Other)
  Sender: ORGANON
  Company Number: None

PATIENT
  Age: 70 Year
  Sex: Male
  Weight: 75 kg

DRUGS (7)
  1. FINASTERIDE [Suspect]
     Active Substance: FINASTERIDE
     Dosage: 1 DOSAGE FORM QD (ONE TO BE TAKEN EACH DAY)
     Dates: end: 20241003
  2. ALFUZOSIN [Suspect]
     Active Substance: ALFUZOSIN
     Dosage: 1 DOSAGE FORM QD (ONE TO BE TAKEN EACH DAY)
     Dates: end: 20241003
  3. FINASTERIDE [Concomitant]
     Active Substance: FINASTERIDE
     Dosage: 1 DOSAGE FORM, QD (ONE TO BE TAKEN EACH DAY)
     Dates: start: 20240919, end: 20241003
  4. FERROUS SULFATE [Concomitant]
     Active Substance: FERROUS SULFATE
     Dosage: 1 DOSAGE FORM TID (ONE TO BE TAKEN THREE TIMES A DAY)
     Dates: start: 20240823
  5. CARBOXYMETHYLCELLULOSE SODIUM\GLYCERIN [Concomitant]
     Active Substance: CARBOXYMETHYLCELLULOSE SODIUM\GLYCERIN
     Dosage: 20 MILLILITER (UP TO FOUR TIMES A DAY AS DIRECTED BY OPHTHALMOLOGY)
     Dates: start: 20240823
  6. LEVOTHYROXINE [Concomitant]
     Active Substance: LEVOTHYROXINE
     Dosage: 1 DOSAGE FORM, QD (1 TO BE TAKEN EACH MORNING)
     Dates: start: 20240831
  7. ALFUZOSIN [Concomitant]
     Active Substance: ALFUZOSIN
     Dosage: 1 DOSAGE FORM, QD (ONE TO BE TAKEN EACH DAY)
     Dates: start: 20240919, end: 20241003

REACTIONS (3)
  - Myalgia [Unknown]
  - Abdominal pain [Unknown]
  - Paraesthesia [Unknown]
